FAERS Safety Report 23030869 (Version 1)
Quarter: 2023Q4

REPORT INFORMATION
  Report Type: Spontaneous
  Country: US (occurrence: None)
  Receive Date: 20231005
  Receipt Date: 20231005
  Transmission Date: 20240110
  Serious: No
  Sender: FDA-Public Use
  Company Number: 2023A221639

PATIENT

DRUGS (2)
  1. FARXIGA [Suspect]
     Active Substance: DAPAGLIFLOZIN PROPANEDIOL
     Indication: Nephrolithiasis
     Route: 048
  2. FARXIGA [Suspect]
     Active Substance: DAPAGLIFLOZIN PROPANEDIOL
     Indication: Chronic kidney disease
     Route: 048

REACTIONS (6)
  - Urine abnormality [Unknown]
  - Urine output increased [Unknown]
  - Blood creatinine increased [Not Recovered/Not Resolved]
  - Glomerular filtration rate decreased [Not Recovered/Not Resolved]
  - Glucose urine [Unknown]
  - Off label use [Unknown]
